FAERS Safety Report 8570071 (Version 3)
Quarter: 2012Q4

REPORT INFORMATION
  Report Type: Report from Study
  Country: JP (occurrence: JP)
  Receive Date: 20120518
  Receipt Date: 20121128
  Transmission Date: 20130627
  Serious: Yes (Hospitalization, Other)
  Sender: FDA-Public Use
  Company Number: JP-ROCHE-1068639

PATIENT
  Age: 55 Year
  Sex: Female

DRUGS (11)
  1. TORASEMIDE [Suspect]
     Indication: FACE OEDEMA
     Route: 048
     Dates: start: 20120326, end: 20120405
  2. TELAPREVIR [Suspect]
     Indication: CHRONIC HEPATITIS C
     Route: 048
     Dates: start: 20120131, end: 20120327
  3. PEGINTERFERON ALFA-2B [Suspect]
     Indication: CHRONIC HEPATITIS C
     Route: 042
     Dates: start: 20120131, end: 20120402
  4. PEGINTERFERON ALFA-2B [Suspect]
     Route: 042
     Dates: start: 20120409
  5. PEGINTERFERON ALFA-2B [Suspect]
     Route: 042
     Dates: end: 20120709
  6. RIBAVIRIN (NON-ROCHE/NON-COMPARATOR) [Suspect]
     Indication: CHRONIC HEPATITIS C
     Route: 048
     Dates: start: 20120131, end: 20120408
  7. RIBAVIRIN (NON-ROCHE/NON-COMPARATOR) [Suspect]
     Route: 048
     Dates: start: 20120409, end: 20120717
  8. SLOW-K [Concomitant]
     Route: 048
  9. ALLELOCK [Concomitant]
     Route: 048
     Dates: start: 20120502
  10. PROMAC D [Concomitant]
     Route: 048
     Dates: start: 20120521
  11. TELMISARTAN [Concomitant]
     Route: 048
     Dates: end: 20120304

REACTIONS (6)
  - Hypokalaemia [Recovered/Resolved]
  - Face oedema [Recovered/Resolved]
  - Vomiting [Recovered/Resolved]
  - Dizziness [Recovered/Resolved]
  - Nausea [Recovered/Resolved]
  - Pruritus [Recovered/Resolved]
